FAERS Safety Report 5965832-7 (Version None)
Quarter: 2008Q4

REPORT INFORMATION
  Report Type: 
  Country: None (occurrence: None)
  Receive Date: 20081125
  Receipt Date: 20081119
  Transmission Date: 20090506
  Serious: Yes (Other)
  Sender: FDA-Public Use
  Company Number: US-BIOGENIDEC-2008BI016815

PATIENT
  Age: 51 Year
  Sex: Female

DRUGS (2)
  1. TYSABRI [Suspect]
     Indication: MULTIPLE SCLEROSIS
     Route: 042
     Dates: start: 20080424
  2. PROTONIX [Concomitant]
     Indication: ABDOMINAL DISCOMFORT

REACTIONS (4)
  - ABDOMINAL PAIN UPPER [None]
  - ANGIOEDEMA [None]
  - HYPERHIDROSIS [None]
  - PRURITUS [None]
